FAERS Safety Report 6694417-2 (Version None)
Quarter: 2010Q2

REPORT INFORMATION
  Report Type: 
  Country: None (occurrence: None)
  Receive Date: 20100423
  Receipt Date: 20100414
  Transmission Date: 20101027
  Serious: Yes (Hospitalization, Other)
  Sender: FDA-Public Use
  Company Number: NL-JNJFOC-20100308551

PATIENT
  Sex: Female
  Weight: 71 kg

DRUGS (12)
  1. REMICADE [Suspect]
     Indication: RHEUMATOID ARTHRITIS
     Dosage: APPROX.64 INFUSIONS
     Route: 042
  2. METHOTREXATE [Suspect]
     Indication: RHEUMATOID ARTHRITIS
  3. HYDROCHLOROTHIAZIDE [Concomitant]
     Indication: DRUG USE FOR UNKNOWN INDICATION
  4. CRESTOR [Concomitant]
  5. LYRICA [Concomitant]
  6. FOLIC ACID [Concomitant]
  7. DIOVAN [Concomitant]
  8. OMEPRAZOLE [Concomitant]
     Indication: GASTRIC DISORDER
  9. CALCICHEW [Concomitant]
     Indication: BONE DISORDER
  10. DUSPATAL RETARD [Concomitant]
  11. MOVICOLON [Concomitant]
  12. PREDNISONE [Concomitant]

REACTIONS (2)
  - HODGKIN'S DISEASE [None]
  - NIGHT SWEATS [None]
